FAERS Safety Report 13372494 (Version 1)
Quarter: 2017Q1

REPORT INFORMATION
  Report Type: Spontaneous
  Country: GB (occurrence: GB)
  Receive Date: 20170327
  Receipt Date: 20170327
  Transmission Date: 20170429
  Serious: Yes (Other)
  Sender: FDA-Public Use
  Company Number: GB-SUN PHARMACEUTICAL INDUSTRIES LTD-2017RR-136571

PATIENT
  Age: 19 Year
  Sex: Male
  Weight: 66.67 kg

DRUGS (1)
  1. ISOTRETINOIN [Suspect]
     Active Substance: ISOTRETINOIN
     Indication: ACNE
     Dosage: 40 MG, QD
     Route: 048
     Dates: start: 20160527, end: 20161012

REACTIONS (25)
  - Myalgia [Recovered/Resolved with Sequelae]
  - Hypoacusis [Recovered/Resolved]
  - Dry throat [Recovered/Resolved]
  - Back pain [Recovered/Resolved]
  - Epistaxis [Recovered/Resolved]
  - Anal fissure [Recovered/Resolved]
  - Hyperhidrosis [Recovered/Resolved with Sequelae]
  - Vision blurred [Recovered/Resolved]
  - Dyspnoea [Recovered/Resolved with Sequelae]
  - Arthralgia [Recovered/Resolved with Sequelae]
  - Mouth ulceration [Recovered/Resolved]
  - Dry eye [Recovered/Resolved with Sequelae]
  - Dry skin [Recovered/Resolved]
  - Suicidal ideation [Recovered/Resolved]
  - Dry mouth [Recovered/Resolved]
  - Skin hyperpigmentation [Recovered/Resolved]
  - Malaise [Recovered/Resolved]
  - Anxiety [Recovered/Resolved]
  - Skin exfoliation [Recovered/Resolved]
  - Nasal mucosal disorder [Recovered/Resolved with Sequelae]
  - Dizziness [Recovered/Resolved]
  - Photosensitivity reaction [Recovered/Resolved]
  - Mood altered [Recovered/Resolved]
  - Skin fragility [Recovered/Resolved]
  - Alopecia [Recovered/Resolved]

NARRATIVE: CASE EVENT DATE: 20160528
